FAERS Safety Report 5513135-7 (Version None)
Quarter: 2007Q4

REPORT INFORMATION
  Report Type: 
  Country: None (occurrence: None)
  Receive Date: 20071112
  Receipt Date: 20071105
  Transmission Date: 20080405
  Serious: Yes (Hospitalization)
  Sender: FDA-Public Use
  Company Number: JP-BRISTOL-MYERS SQUIBB COMPANY-13572797

PATIENT
  Age: 60 Year
  Sex: Male

DRUGS (3)
  1. EFAVIRENZ [Suspect]
     Indication: HIV INFECTION
     Route: 048
     Dates: start: 20060712, end: 20060718
  2. STAVUDINE [Suspect]
     Indication: HIV INFECTION
     Route: 048
     Dates: start: 20060712, end: 20060718
  3. LAMIVUDINE [Suspect]
     Indication: HIV INFECTION
     Route: 048
     Dates: start: 20060712, end: 20060718

REACTIONS (5)
  - ANXIETY [None]
  - FATIGUE [None]
  - INSOMNIA [None]
  - MALAISE [None]
  - NIGHTMARE [None]
